FAERS Safety Report 5592966-1 (Version None)
Quarter: 2008Q1

REPORT INFORMATION
  Report Type: 
  Country: None (occurrence: None)
  Receive Date: 20080116
  Receipt Date: 20080102
  Transmission Date: 20080703
  Serious: Yes (Hospitalization, Other)
  Sender: FDA-Public Use
  Company Number: US-ELI_LILLY_AND_COMPANY-US200801000308

PATIENT
  Sex: Female

DRUGS (5)
  1. FORTEO [Suspect]
     Dates: start: 20060801, end: 20070125
  2. FORTEO [Suspect]
     Dates: start: 20070801
  3. WARFARIN SODIUM [Concomitant]
  4. IRON [Concomitant]
  5. ASPIRIN [Concomitant]

REACTIONS (7)
  - BLOOD DISORDER [None]
  - CARDIAC MURMUR [None]
  - CHRONIC OBSTRUCTIVE PULMONARY DISEASE [None]
  - COUGH [None]
  - EMPHYSEMA [None]
  - INJECTION SITE HAEMORRHAGE [None]
  - SINUS DISORDER [None]
